FAERS Safety Report 6783045 (Version 2)
Quarter: 2014Q2

REPORT INFORMATION
  Report Type: Spontaneous
  Country: FR (occurrence: FR)
  Receive Date: 20081009
  Receipt Date: 20140410
  Transmission Date: 20141212
  Serious: Yes (Hospitalization)
  Sender: FDA-Public Use
  Company Number: FR-BRISTOL-MYERS SQUIBB COMPANY-14361463

PATIENT
  Age: 56 Year
  Sex: Male

DRUGS (2)
  1. TAXOL INJ [Suspect]
     Indication: LUNG CANCER METASTATIC
     Route: 042
     Dates: start: 20080919, end: 20080919
  2. CARBOPLATIN [Suspect]
     Indication: LUNG CANCER METASTATIC
     Route: 042
     Dates: start: 20080919, end: 20080919

REACTIONS (4)
  - Speech disorder [Not Recovered/Not Resolved]
  - Tremor [Not Recovered/Not Resolved]
  - Hypoaesthesia oral [Not Recovered/Not Resolved]
  - Salivary hypersecretion [Not Recovered/Not Resolved]
